FAERS Safety Report 4791401-0 (Version None)
Quarter: 2005Q4

REPORT INFORMATION
  Report Type: 
  Country: None (occurrence: None)
  Receive Date: 20051007
  Receipt Date: 20050930
  Transmission Date: 20060501
  Serious: Yes (Other)
  Sender: FDA-Public Use
  Company Number: US-ROCHE-419895

PATIENT
  Age: 54 Year
  Sex: Female
  Weight: 108.4 kg

DRUGS (2)
  1. BONIVA [Suspect]
     Indication: FRACTURE
     Route: 048
     Dates: start: 20050729
  2. WARFARIN [Concomitant]
     Indication: THROMBOSIS PROPHYLAXIS

REACTIONS (2)
  - INTERNATIONAL NORMALISED RATIO INCREASED [None]
  - PROTHROMBIN TIME PROLONGED [None]
